FAERS Safety Report 6406596-2 (Version None)
Quarter: 2009Q4

REPORT INFORMATION
  Report Type: 
  Country: None (occurrence: None)
  Receive Date: 20091014
  Receipt Date: 20091002
  Transmission Date: 20100525
  Serious: Yes (Other)
  Sender: FDA-Public Use
  Company Number: GXKR2009JP10919

PATIENT
  Age: 1 Year
  Sex: Male

DRUGS (2)
  1. ACETYLSALICYLIC ACID SRT [Suspect]
     Indication: CORONARY ARTERY ANEURYSM
  2. WARFARIN SODIUM [Suspect]
     Indication: CORONARY ARTERY ANEURYSM

REACTIONS (2)
  - ANTIPHOSPHOLIPID ANTIBODIES POSITIVE [None]
  - SUBCUTANEOUS HAEMATOMA [None]
